FAERS Safety Report 6287096-X (Version None)
Quarter: 2009Q3

REPORT INFORMATION
  Report Type: 
  Country: None (occurrence: None)
  Receive Date: 20090728
  Receipt Date: 20090728
  Transmission Date: 20100115
  Serious: Yes (Other)
  Sender: FDA-Public Use
  Company Number: US-PFIZER INC-2009232337

PATIENT
  Sex: Female
  Weight: 58.957 kg

DRUGS (4)
  1. LYRICA [Suspect]
     Indication: RESTLESS LEGS SYNDROME
     Dosage: 75 MG, 2X/DAY
     Dates: start: 20090101, end: 20090101
  2. METFORMIN [Concomitant]
     Dosage: UNK
  3. REQUIP [Concomitant]
     Dosage: UNK
  4. TRICOR [Concomitant]
     Dosage: UNK

REACTIONS (4)
  - FURUNCLE [None]
  - IMPAIRED HEALING [None]
  - SCAB [None]
  - SKIN HAEMORRHAGE [None]
